FAERS Safety Report 9204945 (Version 1)
Quarter: 2013Q2

REPORT INFORMATION
  Report Type: Spontaneous
  Country: US (occurrence: US)
  Receive Date: 20130402
  Receipt Date: 20130402
  Transmission Date: 20140414
  Serious: Yes (Hospitalization)
  Sender: FDA-Public Use
  Company Number: US-B.I. PHARMACEUTICALS,INC./RIDGEFIELD-2013-BI-08360BP

PATIENT
  Age: 79 Year
  Sex: Female

DRUGS (10)
  1. PRADAXA [Suspect]
     Dates: end: 201303
  2. PRO-AIR [Concomitant]
     Dosage: 4 PUF
     Route: 055
  3. ARICEPT [Concomitant]
     Dosage: 5 MG
     Route: 048
  4. ADVAIR [Concomitant]
     Route: 055
  5. METOPROLOL [Concomitant]
     Dosage: 150 MG
     Route: 048
  6. DIGOXIN [Concomitant]
     Dosage: 125 MG
     Route: 048
  7. VALIUM [Concomitant]
     Route: 048
  8. IMIPRAMINE [Concomitant]
     Dosage: 50 MG
     Route: 048
  9. MIDODRINE [Concomitant]
     Dosage: 30 MG
     Route: 048
  10. MIACALCIN [Concomitant]
     Route: 045

REACTIONS (4)
  - Oral disorder [Recovered/Resolved]
  - Diarrhoea [Recovered/Resolved]
  - Vomiting [Recovered/Resolved]
  - Pyrexia [Recovered/Resolved]
